FAERS Safety Report 20654223 (Version 1)
Quarter: 2022Q1

REPORT INFORMATION
  Report Type: Spontaneous
  Country: JP (occurrence: JP)
  Receive Date: 20220330
  Receipt Date: 20220330
  Transmission Date: 20220424
  Serious: No
  Sender: FDA-Public Use
  Company Number: JP-MSD-2202JPN002190J

PATIENT
  Age: 86 Year
  Sex: Female

DRUGS (3)
  1. MOLNUPIRAVIR [Suspect]
     Active Substance: MOLNUPIRAVIR
     Indication: COVID-19 treatment
     Dosage: 800 MILLIGRAM, BID
     Route: 045
     Dates: start: 20220214, end: 20220215
  2. BLONANSERIN [Suspect]
     Active Substance: BLONANSERIN
     Dosage: 20 MILLIGRAM, QD
     Route: 065
  3. N-METHYLSCOPOLAMINE METHYLSULFATE [Suspect]
     Active Substance: N-METHYLSCOPOLAMINE METHYLSULFATE
     Dosage: 1 MILLIGRAM, QD
     Route: 065

REACTIONS (1)
  - Product use issue [Unknown]

NARRATIVE: CASE EVENT DATE: 20220214
